FAERS Safety Report 7630657-3 (Version None)
Quarter: 2011Q3

REPORT INFORMATION
  Report Type: 
  Country: None (occurrence: None)
  Receive Date: 20110722
  Receipt Date: 20110713
  Transmission Date: 20111222
  Serious: Yes (Hospitalization)
  Sender: FDA-Public Use
  Company Number: JP-ASTRAZENECA-2011SE13340

PATIENT
  Age: 80 Year
  Sex: Male
  Weight: 56 kg

DRUGS (6)
  1. CANDESARTAN CILEXETIL [Concomitant]
     Route: 048
  2. IRESSA [Suspect]
     Indication: LUNG ADENOCARCINOMA
     Route: 048
     Dates: start: 20100730, end: 20100922
  3. ZOLPIDEM [Concomitant]
     Route: 048
  4. ZOPICLONE [Concomitant]
     Route: 048
  5. AMLODIPINE [Concomitant]
     Route: 048
  6. WARFARIN SODIUM [Concomitant]
     Dosage: NUMBER OF SEPARATE DOSAGES UNKNOWN
     Route: 048

REACTIONS (3)
  - HEPATIC FUNCTION ABNORMAL [None]
  - INTERNATIONAL NORMALISED RATIO INCREASED [None]
  - RASH [None]
